FAERS Safety Report 7633775-9 (Version None)
Quarter: 2011Q3

REPORT INFORMATION
  Report Type: 
  Country: None (occurrence: None)
  Receive Date: 20110725
  Receipt Date: 20110715
  Transmission Date: 20111222
  Serious: Yes (Other)
  Sender: FDA-Public Use
  Company Number: US-ABBOTT-11P-163-0840325-00

PATIENT
  Sex: Female

DRUGS (5)
  1. DIOVAN [Concomitant]
     Indication: HYPERTENSION
  2. AZILECT [Concomitant]
     Indication: PARKINSON'S DISEASE
  3. HUMIRA [Suspect]
     Indication: RHEUMATOID ARTHRITIS
     Dates: start: 20110201
  4. TOPROL-XL [Concomitant]
     Indication: HYPERTENSION
  5. STALEVO 100 [Concomitant]
     Indication: PARKINSON'S DISEASE

REACTIONS (4)
  - TOOTH FRACTURE [None]
  - ASTHENIA [None]
  - HEADACHE [None]
  - FATIGUE [None]
